FAERS Safety Report 16257964 (Version 1)
Quarter: 2019Q2

REPORT INFORMATION
  Report Type: Spontaneous
  Country: US (occurrence: US)
  Receive Date: 20190430
  Receipt Date: 20190430
  Transmission Date: 20190711
  Serious: No
  Sender: FDA-Public Use
  Company Number: US-TEVA-2019-US-1043261

PATIENT
  Weight: 77.18 kg

DRUGS (1)
  1. DESIPRAMINE HCL [Suspect]
     Active Substance: DESIPRAMINE HYDROCHLORIDE
     Route: 065

REACTIONS (2)
  - Headache [Unknown]
  - Tachycardia [Unknown]
